FAERS Safety Report 9161463 (Version 1)
Quarter: 2013Q1

REPORT INFORMATION
  Report Type: Spontaneous
  Country: US (occurrence: US)
  Receive Date: 20130313
  Receipt Date: 20130313
  Transmission Date: 20140127
  Serious: No
  Sender: FDA-Public Use
  Company Number: US-009507513-1303USA003374

PATIENT
  Sex: Female

DRUGS (4)
  1. REBETOL [Suspect]
     Indication: CHRONIC HEPATITIS C
     Dosage: 1000 MG PER DAY IN DIVIDED DOSE
     Route: 048
     Dates: start: 20120408, end: 20121014
  2. VICTRELIS [Suspect]
     Indication: CHRONIC HEPATITIS C
     Dosage: UNK
     Route: 048
     Dates: start: 20120506
  3. PEGASYS [Suspect]
     Indication: CHRONIC HEPATITIS C
     Dosage: 180 MICROGRAM, QW
     Route: 058
     Dates: start: 20120408, end: 20121014
  4. TELAPREVIR [Suspect]

REACTIONS (12)
  - Decreased appetite [Unknown]
  - Cough [Recovered/Resolved]
  - Rash [Recovered/Resolved]
  - Anaemia [Recovering/Resolving]
  - Limb injury [Unknown]
  - Gastroenteritis viral [Recovered/Resolved]
  - Productive cough [Unknown]
  - Product quality issue [Unknown]
  - Pain [Unknown]
  - Influenza [Unknown]
  - White blood cell count increased [Unknown]
  - Dysgeusia [Recovered/Resolved]
